FAERS Safety Report 6221786-X (Version None)
Quarter: 2009Q2

REPORT INFORMATION
  Report Type: 
  Country: None (occurrence: None)
  Receive Date: 20090610
  Receipt Date: 20090601
  Transmission Date: 20091009
  Serious: Yes (Other)
  Sender: FDA-Public Use
  Company Number: US-AMGEN-QUU349621

PATIENT
  Sex: Female

DRUGS (2)
  1. ENBREL [Suspect]
     Indication: RHEUMATOID ARTHRITIS
     Route: 058
     Dates: start: 20040101
  2. METHOTREXATE [Concomitant]
     Route: 048
     Dates: start: 19800101

REACTIONS (7)
  - BLINDNESS [None]
  - BRONCHITIS [None]
  - COUGH [None]
  - EAR INFECTION [None]
  - INJECTION SITE IRRITATION [None]
  - RETINAL DISORDER [None]
  - SINUSITIS [None]
